FAERS Safety Report 19101609 (Version 1)
Quarter: 2021Q2

REPORT INFORMATION
  Report Type: Spontaneous
  Country: US (occurrence: US)
  Receive Date: 20210407
  Receipt Date: 20210407
  Transmission Date: 20210717
  Serious: Yes (Other)
  Sender: FDA-Public Use
  Company Number: US-AMGEN-USASP2021049538

PATIENT
  Age: 29 Year
  Sex: Male

DRUGS (5)
  1. REPATHA [Suspect]
     Active Substance: EVOLOCUMAB
     Indication: BLOOD CHOLESTEROL INCREASED
     Dosage: 420 MILLIGRAM, QMO
     Route: 065
     Dates: start: 20210329
  2. BUDESONIDE. [Concomitant]
     Active Substance: BUDESONIDE
     Dosage: UNK
  3. XOLAIR [Concomitant]
     Active Substance: OMALIZUMAB
     Dosage: UNK
  4. XELJANZ [Concomitant]
     Active Substance: TOFACITINIB CITRATE
     Dosage: UNK
  5. BUDESONIDE. [Concomitant]
     Active Substance: BUDESONIDE
     Indication: MAST CELL ACTIVATION SYNDROME
     Dosage: UNK UNK, QD
     Route: 048

REACTIONS (3)
  - Mast cell activation syndrome [Not Recovered/Not Resolved]
  - Injection site pain [Unknown]
  - Injection site urticaria [Unknown]

NARRATIVE: CASE EVENT DATE: 20210329
